FAERS Safety Report 4855467-1 (Version None)
Quarter: 2005Q4

REPORT INFORMATION
  Report Type: 
  Country: None (occurrence: None)
  Receive Date: 20051216
  Receipt Date: 20051213
  Transmission Date: 20060501
  Serious: Yes (Other)
  Sender: FDA-Public Use
  Company Number: GB-BOEHRINGER INGELHEIM PHARMACEUTICALS, INC.-2005-UK-02647UK

PATIENT
  Age: 72 Year
  Sex: Female
  Weight: 44 kg

DRUGS (7)
  1. SPIRIVA [Suspect]
     Indication: CHRONIC OBSTRUCTIVE PULMONARY DISEASE
     Route: 055
     Dates: start: 20040120
  2. SERETIDE EVOHALER [Concomitant]
     Route: 055
  3. IPRATROPIUM BROMIDE [Concomitant]
     Dosage: 20MCGX2 QDS
     Route: 055
  4. AMINOPHYLLINE [Concomitant]
     Dosage: 225MG TWICE DAILY
     Route: 065
  5. DIAZEPAM [Concomitant]
     Dosage: 5MG, 3 TIMES DAILY
     Route: 065
  6. SALBUTAMOL [Concomitant]
     Dosage: 100MCG ASD
     Route: 055
  7. LANSOPRAZOLE [Concomitant]
     Route: 065

REACTIONS (1)
  - BURNING SENSATION [None]
